FAERS Safety Report 19816927 (Version 2)
Quarter: 2021Q3

REPORT INFORMATION
  Report Type: Report from Study
  Country: IT (occurrence: IT)
  Receive Date: 20210910
  Receipt Date: 20210916
  Transmission Date: 20211014
  Serious: Yes (Death, Hospitalization, Other)
  Sender: FDA-Public Use
  Company Number: IT-INCYTE CORPORATION-2021IN008114

PATIENT

DRUGS (4)
  1. HYDROXYUREA. [Concomitant]
     Active Substance: HYDROXYUREA
     Indication: LEUKOCYTOSIS
     Dosage: 500 MG (8 CPS/WEEK)
     Route: 065
     Dates: start: 20140101
  2. JAKAVI [Suspect]
     Active Substance: RUXOLITINIB
     Indication: MYELOFIBROSIS
     Dosage: 20 MG, PER DAY
     Route: 048
     Dates: start: 20201207
  3. ACETYLSALICYLIC ACID [Concomitant]
     Active Substance: ASPIRIN
     Indication: THROMBOSIS PROPHYLAXIS
     Dosage: 100 G, QD
     Route: 065
     Dates: start: 20140101
  4. EPOETIN ALFA [Concomitant]
     Active Substance: ERYTHROPOIETIN
     Indication: MYELOFIBROSIS
     Dosage: 40000 U, QW
     Route: 065

REACTIONS (23)
  - White blood cell count increased [Unknown]
  - Blood albumin decreased [Unknown]
  - Red blood cell count decreased [Unknown]
  - Basophil count increased [Unknown]
  - Blood calcium decreased [Unknown]
  - Red cell distribution width increased [Unknown]
  - Lymphocyte count decreased [Unknown]
  - Blood lactate dehydrogenase increased [Unknown]
  - Base excess increased [Unknown]
  - Haematocrit decreased [Unknown]
  - Dysphagia [Fatal]
  - Splenomegaly [Unknown]
  - C-reactive protein increased [Unknown]
  - Osteolysis [Fatal]
  - Pneumonia [Fatal]
  - Platelet count decreased [Unknown]
  - Chloroma [Fatal]
  - Haemoglobin decreased [Unknown]
  - Blood alkaline phosphatase increased [Unknown]
  - Blood bicarbonate increased [Unknown]
  - Blood lactic acid increased [Unknown]
  - Pneumonia aspiration [Fatal]
  - Gamma-glutamyltransferase increased [Unknown]

NARRATIVE: CASE EVENT DATE: 20210620
